FAERS Safety Report 8743169 (Version 2)
Quarter: 2012Q4

REPORT INFORMATION
  Report Type: 
  Country: US (occurrence: US)
  Receive Date: 20120824
  Receipt Date: 20120830
  Transmission Date: 20130627
  Serious: Yes (Other)
  Sender: FDA-Public Use
  Company Number: US-PERRIGO-12US007227

PATIENT
  Age: 3 Year
  Sex: Female
  Weight: 16.33 kg

DRUGS (2)
  1. LICE COMBO 866/9K1/0N8 PK 173 [Suspect]
     Indication: LICE INFESTATION
     Dosage: UNK, single
     Route: 050
     Dates: start: 20120816, end: 20120816
  2. LICE COMBO 866/9K1/0N8 PK 173 [Suspect]
     Dosage: UNK
     Route: 061
     Dates: start: 20120816, end: 20120816

REACTIONS (14)
  - Hypersensitivity [Recovered/Resolved]
  - Eye swelling [Recovering/Resolving]
  - Application site burn [Recovering/Resolving]
  - Wrong technique in drug usage process [Recovered/Resolved]
  - Eye disorder [Recovering/Resolving]
  - Skin exfoliation [Recovering/Resolving]
  - Skin haemorrhage [Recovering/Resolving]
  - Somnolence [Recovering/Resolving]
  - Pain [Recovering/Resolving]
  - Rash [Recovering/Resolving]
  - Eye irritation [Recovering/Resolving]
  - Pruritus [None]
  - Scab [Recovering/Resolving]
  - Ocular hyperaemia [None]
